FAERS Safety Report 9302986 (Version 1)
Quarter: 2013Q2

REPORT INFORMATION
  Report Type: Spontaneous
  Country: CH (occurrence: CH)
  Receive Date: 20130522
  Receipt Date: 20130522
  Transmission Date: 20140414
  Serious: Yes (Hospitalization)
  Sender: FDA-Public Use
  Company Number: CH-PFIZER INC-2013155903

PATIENT
  Age: 62 Year
  Sex: Male

DRUGS (8)
  1. CORDARONE [Suspect]
     Indication: ATRIAL FIBRILLATION
     Dosage: 200 MG, 1X/DAY
     Route: 048
     Dates: start: 2011
  2. MARCOUMAR [Interacting]
     Indication: HEART VALVE REPLACEMENT
     Dosage: ONE 3 MG TABLET ON EVEN DAYS AND 6 MG PER DAY ON ODD DAYS
     Route: 048
     Dates: start: 20130327, end: 20130410
  3. MARCOUMAR [Interacting]
     Dosage: 3 MG, DAILY
     Route: 048
     Dates: end: 20130417
  4. ENATEC [Concomitant]
     Indication: ESSENTIAL HYPERTENSION
     Dosage: UNK
     Dates: start: 2009
  5. SORTIS [Concomitant]
     Dosage: UNK
     Dates: start: 2009
  6. PRADAXA [Concomitant]
     Dosage: UNK
     Dates: start: 201301, end: 20130327
  7. AMOXICILLIN/CLAVULANIC ACID [Concomitant]
     Dosage: UNK
     Dates: start: 20130417, end: 20130417
  8. IBUPROFEN [Concomitant]
     Dosage: UNK
     Dates: start: 20130417

REACTIONS (3)
  - Drug interaction [Unknown]
  - Haematoma [Recovering/Resolving]
  - Obstructive airways disorder [Recovered/Resolved]
